FAERS Safety Report 8931138 (Version 1)
Quarter: 2012Q4

REPORT INFORMATION
  Report Type: 
  Country: FR (occurrence: FR)
  Receive Date: 20121128
  Receipt Date: 20121128
  Transmission Date: 20130627
  Serious: Yes (Hospitalization)
  Sender: FDA-Public Use
  Company Number: FR-EISAI INC-E3810-06095-SPO-FR

PATIENT
  Age: 84 Year
  Sex: Female

DRUGS (11)
  1. PARIET [Suspect]
     Route: 048
     Dates: end: 20120911
  2. ESIDREX [Suspect]
     Route: 048
  3. APROVEL [Concomitant]
     Route: 065
  4. SPECIAFOLDINE [Concomitant]
     Route: 065
  5. TARDYFERON [Concomitant]
     Route: 065
  6. VASTAREL [Concomitant]
     Route: 065
  7. KLIPAL [Concomitant]
     Dosage: UNKNOWN
     Route: 065
  8. LAROXYL [Concomitant]
     Dosage: UNKNOWN
     Route: 065
  9. GANFORT [Concomitant]
     Dosage: UNKNOWN
     Route: 065
  10. TIMOPTOL [Concomitant]
     Dosage: UNKNOWN
     Route: 065
  11. NOVOMIX [Concomitant]
     Route: 065

REACTIONS (3)
  - Confusional state [Recovered/Resolved]
  - Hyponatraemia [Recovered/Resolved]
  - Vomiting [Recovered/Resolved]
